FAERS Safety Report 9354875 (Version 1)
Quarter: 2013Q2

REPORT INFORMATION
  Report Type: Spontaneous
  Country: US (occurrence: US)
  Receive Date: 20130619
  Receipt Date: 20130619
  Transmission Date: 20140414
  Serious: Yes (Hospitalization)
  Sender: FDA-Public Use
  Company Number: US-BIOGENIDEC-2013BI052950

PATIENT
  Age: 50 Year
  Sex: Female

DRUGS (2)
  1. AVONEX [Suspect]
     Indication: MULTIPLE SCLEROSIS
     Route: 030
     Dates: start: 20010411
  2. TYLENOL [Concomitant]
     Indication: INFLUENZA LIKE ILLNESS

REACTIONS (8)
  - Gait disturbance [Recovered/Resolved]
  - Hypertension [Unknown]
  - Multiple allergies [Recovered/Resolved with Sequelae]
  - Thyroid disorder [Not Recovered/Not Resolved]
  - Stress [Recovered/Resolved with Sequelae]
  - Weight increased [Unknown]
  - Memory impairment [Unknown]
  - Influenza like illness [Recovered/Resolved with Sequelae]
